FAERS Safety Report 7953561-X (Version None)
Quarter: 2011Q4

REPORT INFORMATION
  Report Type: 
  Country: None (occurrence: None)
  Receive Date: 20111202
  Receipt Date: 20111128
  Transmission Date: 20120403
  Serious: Yes (Hospitalization)
  Sender: FDA-Public Use
  Company Number: FR-PFIZER INC-2011289088

PATIENT
  Age: 77 Year
  Sex: Female

DRUGS (28)
  1. SOLU-MEDROL [Suspect]
     Indication: PREMEDICATION
     Dosage: UNK
     Route: 042
     Dates: start: 20100201, end: 20100401
  2. ZOFRAN [Suspect]
     Dosage: UNK
     Route: 042
     Dates: start: 20100401, end: 20100501
  3. TAXOL [Concomitant]
     Dosage: UNK
     Dates: start: 20100401, end: 20100501
  4. HERCEPTIN [Concomitant]
     Dosage: UNK
     Dates: start: 20100608, end: 20100608
  5. FOLFOX [Concomitant]
     Dosage: UNK
     Dates: start: 20111004
  6. FLUOROURACIL [Concomitant]
     Dosage: UNK
     Dates: start: 20111109
  7. SOLU-MEDROL [Suspect]
     Dosage: UNK
     Route: 042
     Dates: start: 20111022, end: 20111022
  8. ZOFRAN [Suspect]
     Dosage: UNK
     Route: 042
     Dates: start: 20111022, end: 20111022
  9. TAXOL [Concomitant]
     Dosage: UNK
     Dates: start: 20100608, end: 20100608
  10. PACLITAXEL [Concomitant]
     Dosage: UNK
     Dates: start: 20100528, end: 20100608
  11. FOLFOX [Concomitant]
     Dosage: UNK
     Dates: start: 20110925
  12. HERCEPTIN [Concomitant]
     Dosage: UNK
     Dates: start: 20100528, end: 20110608
  13. FOLFIRI [Concomitant]
     Dosage: UNK
     Dates: start: 20111109
  14. CAMPTOSAR [Concomitant]
     Dosage: UNK
     Dates: start: 20111109
  15. SOLU-MEDROL [Suspect]
     Dosage: UNK
     Dates: start: 20100401, end: 20100501
  16. SOLU-MEDROL [Suspect]
     Dosage: UNK
     Route: 042
     Dates: start: 20100608, end: 20100608
  17. ZOFRAN [Suspect]
     Indication: PREMEDICATION
     Dosage: UNK
     Route: 042
     Dates: start: 20100201, end: 20100401
  18. SOLU-MEDROL [Suspect]
     Dosage: UNK
     Route: 042
     Dates: start: 20100528, end: 20100528
  19. ZOFRAN [Suspect]
     Dosage: UNK
     Route: 042
     Dates: start: 20100528, end: 20100528
  20. FEC [Concomitant]
     Dosage: UNK
     Dates: start: 20100201, end: 20100401
  21. HERCEPTIN [Concomitant]
     Dosage: UNK
     Dates: start: 20100601, end: 20100701
  22. TRASTUZUMAB [Concomitant]
     Dosage: UNK
     Dates: start: 20100601, end: 20100701
  23. FOLFOX [Concomitant]
     Dosage: UNK
     Dates: start: 20110909
  24. FOLFOX [Concomitant]
     Dosage: UNK
     Dates: start: 20111022
  25. SOLU-MEDROL [Suspect]
     Dosage: UNK
     Route: 042
     Dates: start: 20111109, end: 20111109
  26. ZOFRAN [Suspect]
     Dosage: UNK
     Route: 042
     Dates: start: 20100608, end: 20100608
  27. ZOFRAN [Suspect]
     Dosage: UNK
     Route: 042
     Dates: start: 20111109, end: 20111109
  28. TAXOL [Concomitant]
     Dosage: UNK
     Dates: start: 20100528, end: 20100528

REACTIONS (1)
  - CHILLS [None]
